FAERS Safety Report 4309187-2 (Version None)
Quarter: 2004Q1

REPORT INFORMATION
  Report Type: 
  Country: None (occurrence: None)
  Receive Date: 20040227
  Receipt Date: 20040217
  Transmission Date: 20041129
  Serious: Yes (Hospitalization)
  Sender: FDA-Public Use
  Company Number: 2004009992

PATIENT
  Age: 24 Year
  Sex: Male

DRUGS (2)
  1. ZELDOX (CAPSULES)  (ZIPRASIDONE) [Suspect]
     Indication: SCHIZOPHRENIA, PARANOID TYPE
     Dosage: 80 MG (BID), ORAL
     Route: 048
     Dates: start: 20030626, end: 20030627
  2. OLANZAPINE [Concomitant]

REACTIONS (3)
  - DYSKINESIA [None]
  - OESOPHAGEAL SPASM [None]
  - TONGUE SPASM [None]
